FAERS Safety Report 9028373 (Version 2)
Quarter: 2013Q1

REPORT INFORMATION
  Report Type: Spontaneous
  Country: IN (occurrence: IN)
  Receive Date: 20130124
  Receipt Date: 20130222
  Transmission Date: 20140127
  Serious: Yes (Death, Other)
  Sender: FDA-Public Use
  Company Number: IN-COVIDIEN/TYCO HEALTHCARE/MALLINCKRODT-T201300100

PATIENT
  Age: 56 Year
  Sex: Female
  Weight: 80 kg

DRUGS (11)
  1. OPTIRAY [Suspect]
     Indication: COMPUTERISED TOMOGRAM
     Dosage: 60 ML, SINGLE,
     Route: 042
     Dates: start: 20130116, end: 20130116
  2. DECMAX [Concomitant]
     Dosage: 8 MG, UNK
     Route: 048
  3. HAPPI [Concomitant]
  4. NERVIT [Concomitant]
  5. PERINORM [Concomitant]
  6. ZAFOR [Concomitant]
     Dosage: 8 MG, UNK
  7. ARISTOZYME [Concomitant]
     Dosage: 5 ML, UNK
  8. GLOBAC XT [Concomitant]
  9. ONCOVIT [Concomitant]
  10. FORTIZO PROTEIN SUPPLEMENT [Concomitant]
  11. TANTUM                             /00052302/ [Concomitant]

REACTIONS (2)
  - Cardiac arrest [Fatal]
  - Syncope [Unknown]
